FAERS Safety Report 21360480 (Version 1)
Quarter: 2022Q3

REPORT INFORMATION
  Report Type: Spontaneous
  Country: US (occurrence: None)
  Receive Date: 20220921
  Receipt Date: 20220921
  Transmission Date: 20221027
  Serious: Yes (Death)
  Sender: FDA-Public Use
  Company Number: None

PATIENT
  Age: 45 Year
  Sex: Female

DRUGS (17)
  1. ENHERTU [Suspect]
     Active Substance: FAM-TRASTUZUMAB DERUXTECAN-NXKI
     Indication: Breast cancer female
     Dosage: OTHER FREQUENCY : Q12D;?
     Route: 042
  2. ONDANSETRON [Suspect]
     Active Substance: ONDANSETRON
     Indication: Breast cancer female
     Dosage: OTHER FREQUENCY : Q21D;?
     Route: 042
  3. HEPARIN [Concomitant]
  4. FAMOTIDINE [Concomitant]
  5. DIPHENHYDRAMINE [Concomitant]
  6. DEXAMETHASONE IV^S [Concomitant]
  7. ALPRAZOLAM [Concomitant]
  8. DIVALPROEX [Concomitant]
  9. FUROSEMIDE [Concomitant]
  10. LEVETIRACETAM [Concomitant]
  11. MULTIVAMIN [Concomitant]
  12. ONDANSETRON [Concomitant]
  13. PANTOPRAZOLE [Concomitant]
  14. PERCOCET [Concomitant]
  15. QUETIAPINE [Concomitant]
  16. VITAMIN B12 [Concomitant]
  17. ZOLPIDEM [Concomitant]

REACTIONS (1)
  - Death [None]
